FAERS Safety Report 9379867 (Version 2)
Quarter: 2013Q3

REPORT INFORMATION
  Report Type: Spontaneous
  Country: ZA (occurrence: ZA)
  Receive Date: 20130702
  Receipt Date: 20130802
  Transmission Date: 20140515
  Serious: Yes (Hospitalization, Other)
  Sender: FDA-Public Use
  Company Number: ZA-ELI_LILLY_AND_COMPANY-ZA201307000158

PATIENT
  Age: 0 Day
  Sex: 0
  Weight: 3.65 kg

DRUGS (3)
  1. HUMALOG LISPRO [Suspect]
     Indication: TYPE 1 DIABETES MELLITUS
     Dosage: UNK
     Route: 064
     Dates: start: 201103, end: 20130324
  2. LANTUS [Concomitant]
     Dosage: 40 IU, UNK
  3. LANTUS [Concomitant]
     Dosage: 30 IU, QD
     Route: 064

REACTIONS (2)
  - Lung disorder [Recovered/Resolved]
  - Foetal exposure during pregnancy [Recovered/Resolved]
